FAERS Safety Report 7470327-8 (Version None)
Quarter: 2011Q2

REPORT INFORMATION
  Report Type: 
  Country: None (occurrence: None)
  Receive Date: 20110510
  Receipt Date: 20110504
  Transmission Date: 20111010
  Serious: Yes (Hospitalization)
  Sender: FDA-Public Use
  Company Number: US-GILEAD-2011-0038370

PATIENT
  Sex: Female

DRUGS (16)
  1. LETAIRIS [Suspect]
     Indication: PULMONARY HYPERTENSION
     Route: 048
     Dates: start: 20080709
  2. AMBIEN [Concomitant]
  3. LEXAPRO [Concomitant]
  4. VICODIN [Concomitant]
  5. FERROUS SULFATE TAB [Concomitant]
  6. TYVASO [Concomitant]
  7. LASIX [Concomitant]
  8. NOVOLOG [Concomitant]
  9. LOESTRIN 1.5/30 [Concomitant]
  10. POTASSIUM CHLORIDE [Concomitant]
  11. ASPIRIN [Concomitant]
  12. LEVOTHYROXINE SODIUM [Concomitant]
  13. ADCIRCA [Concomitant]
  14. DIGOXIN [Concomitant]
  15. OXYGEN [Concomitant]
  16. NEXIUM [Concomitant]

REACTIONS (1)
  - EMBOLIC STROKE [None]
